FAERS Safety Report 26005081 (Version 1)
Quarter: 2025Q4

REPORT INFORMATION
  Report Type: Other
  Country: GB (occurrence: GB)
  Receive Date: 20251106
  Receipt Date: 20251106
  Transmission Date: 20260119
  Serious: Yes (Hospitalization, Other)
  Sender: ZYDUS PHARM
  Company Number: None

PATIENT

DRUGS (5)
  1. RAMIPRIL [Suspect]
     Active Substance: RAMIPRIL
     Indication: Essential hypertension
     Dosage: 1.25 MILLIGRAM ONCE A DAY IN THE MORNING
     Route: 065
     Dates: start: 20250422, end: 20251028
  2. AMLODIPINE [Concomitant]
     Active Substance: AMLODIPINE BESYLATE
     Indication: Essential hypertension
     Dosage: UNK
     Route: 065
     Dates: start: 20180613
  3. LACTULOSE [Concomitant]
     Active Substance: LACTULOSE
     Indication: Product used for unknown indication
     Dosage: UNK
     Route: 065
     Dates: start: 20210221
  4. OMEPRAZOLE [Concomitant]
     Active Substance: OMEPRAZOLE
     Indication: Product used for unknown indication
     Dosage: UNK
     Route: 065
     Dates: start: 20251017
  5. ALBUTEROL [Concomitant]
     Active Substance: ALBUTEROL
     Indication: Chronic obstructive pulmonary disease
     Dosage: UNK
     Route: 065

REACTIONS (2)
  - Anaphylactic reaction [Recovered/Resolved]
  - Angioedema [Recovered/Resolved]

NARRATIVE: CASE EVENT DATE: 20251028
